FAERS Safety Report 10933297 (Version 1)
Quarter: 2015Q1

REPORT INFORMATION
  Report Type: Spontaneous
  Country: CN (occurrence: CN)
  Receive Date: 20150320
  Receipt Date: 20150320
  Transmission Date: 20150721
  Serious: Yes (Other)
  Sender: FDA-Public Use
  Company Number: CN-MERCK-1503CHN009169

PATIENT
  Sex: Female

DRUGS (1)
  1. MARVELON [Suspect]
     Active Substance: DESOGESTREL\ETHINYL ESTRADIOL
     Dosage: INTERMITTENTLY
     Route: 048
     Dates: start: 2006, end: 20150314

REACTIONS (4)
  - Abortion induced [Unknown]
  - Unintended pregnancy [Recovered/Resolved]
  - Uterine haemorrhage [Unknown]
  - Uterine haemorrhage [Unknown]

NARRATIVE: CASE EVENT DATE: 201410
